FAERS Safety Report 11969456 (Version 1)
Quarter: 2016Q1

REPORT INFORMATION
  Report Type: Spontaneous
  Country: US (occurrence: None)
  Receive Date: 20160119
  Receipt Date: 20160119
  Transmission Date: 20160526
  Serious: Yes (Other)
  Sender: FDA-Public Use
  Company Number: 2015-US-005628

PATIENT
  Sex: Female

DRUGS (1)
  1. ERWINAZE [Suspect]
     Active Substance: ASPARAGINASE ERWINIA CHRYSANTHEMI
     Dosage: 3 DOSES, INTRAVENOUS
     Route: 042

REACTIONS (3)
  - Pancreatitis [None]
  - Abdominal pain [None]
  - Vomiting [None]
